FAERS Safety Report 6844245-X (Version None)
Quarter: 2010Q3

REPORT INFORMATION
  Report Type: 
  Country: None (occurrence: None)
  Receive Date: 20100712
  Receipt Date: 20100628
  Transmission Date: 20110219
  Serious: Yes (Hospitalization)
  Sender: FDA-Public Use
  Company Number: FRP10000736

PATIENT
  Age: 65 Year
  Sex: Female

DRUGS (11)
  1. ACTONEL [Suspect]
     Dosage: 35 MG, 1 /WEEK, ORAL
     Route: 048
  2. ARAVA [Suspect]
     Indication: RHEUMATOID ARTHRITIS
     Dosage: 20 MG, 1 /DAY, ORAL
     Route: 048
     Dates: start: 20020101, end: 20091210
  3. HUMIRA [Suspect]
     Dosage: 40 MG, 2 CD/MONTH, ORAL
     Route: 048
     Dates: start: 20090401, end: 20100301
  4. MOPRAL /00661201/ (OMEPRAZOLE) [Suspect]
     Dosage: 20 MG, 1 /DAY, ORAL
     Route: 048
  5. SEROPRAM /00582602/ (CITALOPRAM HYDROBROMIDE) [Suspect]
     Indication: DEPRESSION
     Dosage: 20 MG, 1 /DAY, ORAL
     Route: 048
  6. XANAX [Suspect]
     Indication: ANXIETY
     Dosage: 0.5 MG, 1 /DAY, ORAL
     Route: 048
  7. CLONAZEPAM [Suspect]
     Indication: SLEEP DISORDER
     Dosage: 15 MG, 1 /DAY, ORAL
     Route: 048
  8. PREDNISONE [Suspect]
     Dosage: 10 MG, 1 /DAY, ORAL
     Route: 048
  9. TEMERIT /01339101/ (NEBIVOLOL) [Suspect]
     Dosage: 5 MG, 1 /DAY, ORAL
     Route: 048
  10. VALSARTAN [Suspect]
     Indication: HYPERTENSION
     Dosage: 160 MG, 1 /DAY, ORAL
     Route: 048
  11. DAFALGAN /00020001/ (PARACETAMOL) [Suspect]
     Dosage: ORAL
     Route: 048

REACTIONS (3)
  - GAIT DISTURBANCE [None]
  - NEUROPATHY PERIPHERAL [None]
  - PERIPHERAL SENSORY NEUROPATHY [None]
